FAERS Safety Report 18199101 (Version 1)
Quarter: 2020Q3

REPORT INFORMATION
  Report Type: Spontaneous
  Country: US (occurrence: US)
  Receive Date: 20200826
  Receipt Date: 20200826
  Transmission Date: 20201103
  Serious: Yes (Hospitalization, Other)
  Sender: FDA-Public Use
  Company Number: US-MALLINCKRODT-T202004001

PATIENT
  Sex: Male
  Weight: 9 kg

DRUGS (6)
  1. H.P. ACTHAR [Suspect]
     Active Substance: CORTICOTROPIN
     Dosage: DAY 18 TO 20: INJECT 0.05 ML (4 UNITS) ONCE DAILY
     Route: 030
  2. H.P. ACTHAR [Suspect]
     Active Substance: CORTICOTROPIN
     Dosage: DAY 24 TO 29: INJECT 0.04 ML (3.2 UNITS) EVERY OTHER DAY
     Route: 030
  3. H.P. ACTHAR [Suspect]
     Active Substance: CORTICOTROPIN
     Dosage: DAY 15 TO 17: INJECT 0.11 ML (8.8 UNITS) ONCE DAILY
     Route: 030
  4. H.P. ACTHAR [Suspect]
     Active Substance: CORTICOTROPIN
     Dosage: DAY 21 TO 23: INJECT 0.04 ML (3.2 UNITS) ONCE DAILY
     Route: 030
  5. EPIDIOLEX [Concomitant]
     Active Substance: CANNABIDIOL
     Indication: PRODUCT USED FOR UNKNOWN INDICATION
     Dosage: UNK
     Route: 065
  6. H.P. ACTHAR [Suspect]
     Active Substance: CORTICOTROPIN
     Indication: INFANTILE SPASMS
     Dosage: DAY 1 TO 14 INJECT 0.27 ML (21.6 UNITS) TWICE DAILY
     Route: 030

REACTIONS (3)
  - Tonsillectomy [Unknown]
  - Tonsillar disorder [Unknown]
  - Dyspnoea [Unknown]

NARRATIVE: CASE EVENT DATE: 2020
